FAERS Safety Report 5265560-X (Version None)
Quarter: 2007Q1

REPORT INFORMATION
  Report Type: 
  Country: None (occurrence: None)
  Receive Date: 20070314
  Receipt Date: 20070309
  Transmission Date: 20070707
  Serious: Yes (Life-Threatening, Hospitalization)
  Sender: FDA-Public Use
  Company Number: CA-MERCK-0703CAN00098

PATIENT
  Age: 60 Year
  Sex: Male

DRUGS (8)
  1. COZAAR [Suspect]
     Indication: HYPERTENSION
     Route: 048
     Dates: start: 20060225, end: 20060423
  2. COZAAR [Suspect]
     Route: 048
     Dates: start: 20060424, end: 20060522
  3. COZAAR [Suspect]
     Route: 048
     Dates: start: 20060523, end: 20070217
  4. HYZAAR [Suspect]
     Indication: HYPERTENSION
     Route: 048
     Dates: start: 20060523, end: 20070217
  5. MICARDIS [Concomitant]
     Indication: HYPERTENSION
     Route: 065
     Dates: start: 20030714, end: 20060210
  6. ADALAT [Concomitant]
     Indication: HYPERTENSION
     Route: 065
     Dates: start: 20030714, end: 20060210
  7. LIPIDIL [Concomitant]
     Indication: DYSLIPIDAEMIA
     Route: 065
     Dates: start: 20020704
  8. RHINALAR [Concomitant]
     Indication: RHINITIS ALLERGIC
     Route: 065
     Dates: start: 20060106

REACTIONS (2)
  - CHEST PAIN [None]
  - CORONARY ARTERY DISEASE [None]
